FAERS Safety Report 4755118-0 (Version None)
Quarter: 2005Q3

REPORT INFORMATION
  Report Type: 
  Country: None (occurrence: None)
  Receive Date: 20050829
  Receipt Date: 20050823
  Transmission Date: 20060218
  Serious: Yes (Other)
  Sender: FDA-Public Use
  Company Number: US-JNJFOC-20050805287

PATIENT
  Sex: Female
  Weight: 53.98 kg

DRUGS (10)
  1. REMICADE [Suspect]
     Route: 042
  2. REMICADE [Suspect]
     Indication: RHEUMATOID ARTHRITIS
     Route: 042
  3. CALCIUM SUPPLEMENT [Concomitant]
     Indication: OSTEOPOROSIS
  4. METHOTREXATE [Concomitant]
  5. PLAQUENIL [Concomitant]
  6. FOLIC ACID [Concomitant]
  7. MOBIC [Concomitant]
  8. ACTIVELLA [Concomitant]
  9. ACTIVELLA [Concomitant]
  10. PROZAC [Concomitant]

REACTIONS (1)
  - TONGUE NEOPLASM MALIGNANT STAGE UNSPECIFIED [None]
